FAERS Safety Report 14402141 (Version 2)
Quarter: 2018Q1

REPORT INFORMATION
  Report Type: Report from Study
  Country: CN (occurrence: CN)
  Receive Date: 20180117
  Receipt Date: 20180124
  Transmission Date: 20180509
  Serious: Yes (Hospitalization, Other)
  Sender: FDA-Public Use
  Company Number: CN-ASTELLAS-2018US002877

PATIENT
  Age: 64 Year
  Sex: Male

DRUGS (1)
  1. ERLOTINIB [Suspect]
     Active Substance: ERLOTINIB
     Indication: NON-SMALL CELL LUNG CANCER
     Route: 048
     Dates: start: 20140321

REACTIONS (5)
  - Malignant neoplasm progression [Unknown]
  - Neoplasm progression [Unknown]
  - Wheezing [Unknown]
  - Bedridden [Unknown]
  - Lung infection [Unknown]

NARRATIVE: CASE EVENT DATE: 20171207
